FAERS Safety Report 21555536 (Version 1)
Quarter: 2022Q4

REPORT INFORMATION
  Report Type: Spontaneous
  Country: US (occurrence: US)
  Receive Date: 20221104
  Receipt Date: 20221104
  Transmission Date: 20230113
  Serious: No
  Sender: FDA-Public Use
  Company Number: US-BAYER-2022A154354

PATIENT
  Age: 51 Year
  Sex: Male

DRUGS (1)
  1. GADAVIST [Suspect]
     Active Substance: GADOBUTROL
     Indication: Magnetic resonance imaging
     Dosage: 5 ML, ONCE
     Dates: start: 20221102, end: 20221102

REACTIONS (2)
  - Chest pain [None]
  - Hyperhidrosis [None]

NARRATIVE: CASE EVENT DATE: 20221102
